FAERS Safety Report 20785255 (Version 1)
Quarter: 2022Q2

REPORT INFORMATION
  Report Type: Spontaneous
  Country: US (occurrence: None)
  Receive Date: 20220504
  Receipt Date: 20220504
  Transmission Date: 20220721
  Serious: Yes (Other)
  Sender: FDA-Public Use
  Company Number: None

PATIENT
  Age: 33 Year
  Sex: Male
  Weight: 86.18 kg

DRUGS (1)
  1. .DELTA.8-TETRAHYDROCANNABINOL\HERBALS [Suspect]
     Active Substance: .DELTA.8-TETRAHYDROCANNABINOL\HERBALS
     Indication: Anxiety
     Dosage: FREQUENCY : AS NEEDED;?
     Route: 055
     Dates: start: 20220503, end: 20220503

REACTIONS (7)
  - Sedation [None]
  - Nausea [None]
  - Malaise [None]
  - Sexual activity increased [None]
  - Anxiety [None]
  - Product container seal issue [None]
  - Suspected product tampering [None]

NARRATIVE: CASE EVENT DATE: 20220503
